FAERS Safety Report 21737508 (Version 1)
Quarter: 2022Q4

REPORT INFORMATION
  Report Type: Spontaneous
  Country: US (occurrence: US)
  Receive Date: 20221216
  Receipt Date: 20221216
  Transmission Date: 20230113
  Serious: Yes (Hospitalization)
  Sender: FDA-Public Use
  Company Number: US-ENDO PHARMACEUTICALS INC-2022-002358

PATIENT
  Age: 18 Year
  Sex: Male
  Weight: 82.54 kg

DRUGS (2)
  1. XIAFLEX [Suspect]
     Active Substance: COLLAGENASE CLOSTRIDIUM HISTOLYTICUM
     Indication: Peyronie^s disease
     Dosage: 0.58 MG, UNKNOWN, (CYCLE ONE, INJECTION ONE)
     Route: 026
     Dates: start: 20220314
  2. XIAFLEX [Suspect]
     Active Substance: COLLAGENASE CLOSTRIDIUM HISTOLYTICUM
     Dosage: 0.58 MG, UNKNOWN, (CYCLE ONE, INJECTION TWO)
     Route: 026
     Dates: start: 20220321, end: 20220321

REACTIONS (7)
  - Penile swelling [Recovering/Resolving]
  - Penile contusion [Recovering/Resolving]
  - Penile haematoma [Recovering/Resolving]
  - Penile pain [Recovering/Resolving]
  - Contusion [Recovered/Resolved]
  - Swelling [Recovered/Resolved]
  - Inappropriate schedule of product administration [Recovered/Resolved]

NARRATIVE: CASE EVENT DATE: 20220301
